FAERS Safety Report 26083020 (Version 1)
Quarter: 2025Q4

REPORT INFORMATION
  Report Type: Spontaneous
  Country: US (occurrence: US)
  Receive Date: 20251124
  Receipt Date: 20251124
  Transmission Date: 20260118
  Serious: No
  Sender: DR REDDYS
  Company Number: None

PATIENT
  Age: 42 Year
  Sex: Female

DRUGS (8)
  1. BUPRENORPHINE\NALOXONE [Suspect]
     Active Substance: BUPRENORPHINE\NALOXONE
     Indication: Drug use disorder
     Dosage: ON DAYS 1 AND 2
     Route: 060
  2. BUPRENORPHINE\NALOXONE [Suspect]
     Active Substance: BUPRENORPHINE\NALOXONE
     Dosage: ON DAY 3
     Route: 060
  3. BUPRENORPHINE\NALOXONE [Suspect]
     Active Substance: BUPRENORPHINE\NALOXONE
     Dosage: ON DAY 12: 12 MG OF BUP/NLX (4 MG THREE TIMES DAILY)
     Route: 060
  4. METHADONE [Concomitant]
     Active Substance: METHADONE HYDROCHLORIDE
     Indication: Product used for unknown indication
  5. GABAPENTIN [Concomitant]
     Active Substance: GABAPENTIN
     Indication: Restless legs syndrome
  6. GABAPENTIN [Concomitant]
     Active Substance: GABAPENTIN
     Indication: Back pain
  7. TRAMADOL [Concomitant]
     Active Substance: TRAMADOL
     Indication: Restless legs syndrome
  8. TRAMADOL [Concomitant]
     Active Substance: TRAMADOL
     Indication: Back pain

REACTIONS (2)
  - Fatigue [Unknown]
  - Restless legs syndrome [Unknown]
